FAERS Safety Report 6856780-9 (Version None)
Quarter: 2010Q3

REPORT INFORMATION
  Report Type: 
  Country: None (occurrence: None)
  Receive Date: 20100719
  Receipt Date: 20100708
  Transmission Date: 20110219
  Serious: Yes (Hospitalization)
  Sender: FDA-Public Use
  Company Number: US-AMGEN-QUU423095

PATIENT
  Sex: Female

DRUGS (5)
  1. ENBREL [Suspect]
     Indication: PRODUCT USED FOR UNKNOWN INDICATION
     Dates: start: 20070201, end: 20091101
  2. INFLIXIMAB [Concomitant]
  3. METHOTREXATE [Concomitant]
  4. CYCLOSPORINE [Concomitant]
  5. PLAQUENIL [Concomitant]

REACTIONS (2)
  - COLON CANCER [None]
  - INTESTINAL POLYP [None]
